FAERS Safety Report 24578271 (Version 1)
Quarter: 2024Q4

REPORT INFORMATION
  Report Type: Spontaneous
  Country: DE (occurrence: DE)
  Receive Date: 20241105
  Receipt Date: 20241105
  Transmission Date: 20250114
  Serious: Yes (Other)
  Sender: AMGEN
  Company Number: DE-Vifor (International) Inc.-VIT-2024-09947

PATIENT
  Age: 29 Year
  Sex: Female
  Weight: 66 kg

DRUGS (19)
  1. TAVNEOS [Suspect]
     Active Substance: AVACOPAN
     Indication: Anti-neutrophil cytoplasmic antibody positive vasculitis
     Dosage: 30 MILLIGRAM, QD
     Route: 048
     Dates: start: 20240403
  2. RITUXIMAB [Concomitant]
     Active Substance: RITUXIMAB
     Indication: Anti-neutrophil cytoplasmic antibody positive vasculitis
     Dosage: SINGLE INFUSION
     Route: 040
     Dates: start: 20240326, end: 20240326
  3. RITUXIMAB [Concomitant]
     Active Substance: RITUXIMAB
     Dosage: SINGLE INFUSION
     Route: 040
     Dates: start: 20240404, end: 20240404
  4. RITUXIMAB [Concomitant]
     Active Substance: RITUXIMAB
     Dosage: SINGLE INFUSION
     Route: 040
     Dates: start: 20240411, end: 20240411
  5. RITUXIMAB [Concomitant]
     Active Substance: RITUXIMAB
     Dosage: SINGLE INFUSION
     Route: 040
     Dates: start: 20240418, end: 20240418
  6. PREDNISOLONE [Concomitant]
     Active Substance: PREDNISOLONE
     Indication: Anti-neutrophil cytoplasmic antibody positive vasculitis
     Dosage: 250 MILLIGRAM, QD
     Route: 048
     Dates: start: 20240322, end: 20240325
  7. PREDNISOLONE [Concomitant]
     Active Substance: PREDNISOLONE
     Dosage: 60 MILLIGRAM, QD
     Route: 048
     Dates: start: 202404, end: 20240411
  8. PREDNISOLONE [Concomitant]
     Active Substance: PREDNISOLONE
     Dosage: 20 MILLIGRAM, QD
     Route: 048
     Dates: start: 20240411, end: 20240415
  9. PREDNISOLONE [Concomitant]
     Active Substance: PREDNISOLONE
     Dosage: 5 MILLIGRAM, QD
     Route: 048
     Dates: start: 20240415
  10. PANTOPRAZOLE [Concomitant]
     Active Substance: PANTOPRAZOLE
     Indication: Gastrointestinal disorder prophylaxis
     Dosage: 40 MILLIGRAM, QD
     Route: 048
     Dates: start: 202404
  11. COTRIMOXAZOLE [Concomitant]
     Active Substance: SULFAMETHOXAZOLE\TRIMETHOPRIM
     Indication: Anti-neutrophil cytoplasmic antibody positive vasculitis
     Dosage: 400/80
     Route: 048
     Dates: start: 20240322
  12. EPOETIN ALFA [Concomitant]
     Active Substance: ERYTHROPOIETIN
     Indication: Anti-neutrophil cytoplasmic antibody positive vasculitis
     Dosage: 0.3 MILLILITER, QD
     Route: 058
     Dates: start: 202404
  13. SODIUM BICARBONATE [Concomitant]
     Active Substance: SODIUM BICARBONATE
     Indication: Anti-neutrophil cytoplasmic antibody positive vasculitis
     Dosage: 3/ DAY ON 2 DAYS/WEEK
     Route: 048
     Dates: start: 202404
  14. RAMIPRIL [Concomitant]
     Active Substance: RAMIPRIL
     Indication: Anti-neutrophil cytoplasmic antibody positive vasculitis
     Dosage: TWICE DAILY (MORNING: 5MG, AFTERNOON:2.5MG)
     Route: 048
     Dates: start: 202404
  15. AMLODIPINE [Concomitant]
     Active Substance: AMLODIPINE BESYLATE
     Indication: Anti-neutrophil cytoplasmic antibody positive vasculitis
     Dosage: 5 MILLIGRAM, QD
     Route: 048
     Dates: start: 202404
  16. TORSEMIDE [Concomitant]
     Active Substance: TORSEMIDE
     Indication: Anti-neutrophil cytoplasmic antibody positive vasculitis
     Dosage: 100 MILLIGRAM, QD
     Route: 048
     Dates: start: 202404
  17. CHOLECALCIFEROL [Concomitant]
     Active Substance: CHOLECALCIFEROL
     Indication: Anti-neutrophil cytoplasmic antibody positive vasculitis
     Dosage: 20 IE
     Route: 048
     Dates: start: 202404, end: 202406
  18. XIPAMIDE [Concomitant]
     Active Substance: XIPAMIDE
     Indication: Anti-neutrophil cytoplasmic antibody positive vasculitis
     Dosage: 10 MILLIGRAM, QD
     Route: 048
     Dates: start: 202407
  19. SEVELAMER CARBONATE [Concomitant]
     Active Substance: SEVELAMER CARBONATE
     Indication: Anti-neutrophil cytoplasmic antibody positive vasculitis
     Dosage: 800 MILLIGRAM, QD
     Route: 048
     Dates: start: 202407

REACTIONS (7)
  - Shunt occlusion [Not Recovered/Not Resolved]
  - Arthralgia [Not Recovered/Not Resolved]
  - Dysgeusia [Not Recovered/Not Resolved]
  - Psoriasis [Not Recovered/Not Resolved]
  - Paraesthesia [Not Recovered/Not Resolved]
  - Nasopharyngitis [Recovered/Resolved]
  - Headache [Not Recovered/Not Resolved]

NARRATIVE: CASE EVENT DATE: 20240101
